FAERS Safety Report 9630009 (Version 2)
Quarter: 2013Q4

REPORT INFORMATION
  Report Type: Spontaneous
  Country: US (occurrence: US)
  Receive Date: 20131017
  Receipt Date: 20131230
  Transmission Date: 20140711
  Serious: Yes (Other)
  Sender: FDA-Public Use
  Company Number: US-UCBSA-099977

PATIENT
  Age: 50 Year
  Sex: Female
  Weight: 56.24 kg

DRUGS (10)
  1. KEPPRA XR [Suspect]
     Indication: PARTIAL SEIZURES
     Dosage: TOOK ONE DOSE
     Dates: start: 201211, end: 201211
  2. KEPPRA XR [Suspect]
     Indication: PARTIAL SEIZURES
     Dosage: TOOK ONE DOSE
     Dates: start: 201211, end: 201211
  3. VIMPAT [Suspect]
     Indication: PARTIAL SEIZURES
     Dosage: 225 MG IN THE AM AND 150 MG AT BEDTIME
     Dates: start: 2013
  4. VIMPAT [Suspect]
     Indication: PARTIAL SEIZURES
     Dosage: 225 MG IN THE AM AND 150 MG AT BEDTIME
     Dates: start: 2013
  5. VIMPAT [Suspect]
     Indication: PARTIAL SEIZURES
     Dosage: STRENGTH: 150 MG
     Dates: start: 2013, end: 2013
  6. VIMPAT [Suspect]
     Indication: PARTIAL SEIZURES
     Dosage: STRENGTH: 150 MG
     Dates: start: 2013, end: 2013
  7. VIMPAT [Suspect]
     Indication: PARTIAL SEIZURES
     Dosage: STRENGTH: 150 MG
     Dates: start: 201303, end: 2013
  8. VIMPAT [Suspect]
     Indication: PARTIAL SEIZURES
     Dosage: STRENGTH: 150 MG
     Dates: start: 201303, end: 2013
  9. TOPAMAX [Concomitant]
  10. GABAPENTIN [Concomitant]

REACTIONS (12)
  - Status epilepticus [Unknown]
  - Dyspnoea [Unknown]
  - Weight increased [Unknown]
  - Insomnia [Unknown]
  - Local swelling [Unknown]
  - Balance disorder [Unknown]
  - Dizziness [Unknown]
  - Depression [Unknown]
  - Lymphadenopathy [Unknown]
  - Ocular hyperaemia [Unknown]
  - Vision blurred [Unknown]
  - Migraine [Unknown]
